FAERS Safety Report 8906291 (Version 1)
Quarter: 2012Q4

REPORT INFORMATION
  Report Type: Spontaneous
  Country: US (occurrence: None)
  Receive Date: 20121112
  Receipt Date: 20121112
  Transmission Date: 20130627
  Serious: Yes (Hospitalization)
  Sender: FDA-Public Use
  Company Number: None

PATIENT
  Age: 33 Year
  Sex: Male
  Weight: 111 kg

DRUGS (22)
  1. MIDAZOLAM [Suspect]
     Indication: SEDATION
     Dosage: 7mg once IV
     Route: 042
     Dates: start: 20121108, end: 20121108
  2. LIDOCAINE [Concomitant]
  3. MYCOPHENOLATE MOFETIL [Concomitant]
  4. PREDNISONE -PREDNISONE- [Concomitant]
  5. RAPAMUNE -SIROLIMUS- [Concomitant]
  6. MYCELOX -CLOTRIMAZOLE- [Concomitant]
  7. VALCYTE -VALGANCYCLOVIR- [Concomitant]
  8. VFEND -VORICONAZOLE- [Concomitant]
  9. ZITHROMAX -AZITHROMYCIN- [Concomitant]
  10. CATAPRES -CLONIDINE- [Concomitant]
  11. COLACE -DOCUSATE SODIUM- [Concomitant]
  12. FLONASE -FIUTICASONE PROPIONATE- [Concomitant]
  13. FERROUS SULFATE -IRON- [Concomitant]
  14. GAS-X -SIMETHICONE- [Concomitant]
  15. LOPRESSOR -METOPROLOL- [Concomitant]
  16. MAG-OX -MAGNESIUM- [Concomitant]
  17. MULTIVITAMINS -MULTIVITAMIN- [Concomitant]
  18. MULTIVITAMIN [Concomitant]
  19. VITAMIN C WITH IRON [Concomitant]
  20. POTASSIUM -POTASSIUM- [Concomitant]
  21. PRILOSEC -OMEPRAZOLE- [Concomitant]
  22. XANAX -ALPRAZOLAM- [Concomitant]

REACTIONS (5)
  - Hemiplegia [None]
  - Mental status changes [None]
  - Dyskinesia [None]
  - Eye disorder [None]
  - Urinary incontinence [None]
